FAERS Safety Report 9849976 (Version 1)
Quarter: 2014Q1

REPORT INFORMATION
  Report Type: Spontaneous
  Country: US (occurrence: None)
  Receive Date: 20140124
  Receipt Date: 20140124
  Transmission Date: 20141002
  Serious: Yes (Disabling)
  Sender: FDA-Public Use
  Company Number: None

PATIENT
  Age: 78 Year
  Sex: Male
  Weight: 103.87 kg

DRUGS (8)
  1. CLONIDINE [Suspect]
     Indication: HYPERTENSION
     Route: 048
  2. NORVASC [Concomitant]
  3. LABETALOL [Concomitant]
  4. METHATREXATE 2.5 MG [Concomitant]
  5. COZAAR [Concomitant]
  6. ASPIRIN [Concomitant]
  7. 1 A DAY VITAMIN [Suspect]
  8. POTASSIUM [Concomitant]

REACTIONS (8)
  - Dizziness [None]
  - Tremor [None]
  - Dyspnoea [None]
  - Dizziness [None]
  - Constipation [None]
  - Loss of libido [None]
  - Fall [None]
  - Balance disorder [None]
